FAERS Safety Report 9706506 (Version 3)
Quarter: 2014Q1

REPORT INFORMATION
  Report Type: Spontaneous
  Country: IT (occurrence: IT)
  Receive Date: 20131125
  Receipt Date: 20140114
  Transmission Date: 20141002
  Serious: Yes (Other)
  Sender: FDA-Public Use
  Company Number: IT-ROCHE-1306662

PATIENT
  Age: 51 Year
  Sex: Male

DRUGS (3)
  1. PEGASYS [Suspect]
     Indication: HEPATITIS C
     Route: 058
     Dates: start: 20131011
  2. INCIVO [Suspect]
     Indication: HEPATITIS C
     Dosage: TABLET OF 375 MG
     Route: 048
     Dates: start: 20131011, end: 20131108
  3. COPEGUS [Concomitant]
     Indication: HEPATITIS C
     Dosage: TABLET OF 400 MG.
     Route: 048
     Dates: start: 20131011

REACTIONS (2)
  - Skin exfoliation [Recovering/Resolving]
  - Lichenoid keratosis [Recovering/Resolving]
